FAERS Safety Report 6014292-9 (Version None)
Quarter: 2008Q4

REPORT INFORMATION
  Report Type: 
  Country: None (occurrence: None)
  Receive Date: 20081219
  Receipt Date: 20080404
  Transmission Date: 20090506
  Serious: No
  Sender: FDA-Public Use
  Company Number: A0717869A

PATIENT
  Age: 70 Year
  Sex: Male

DRUGS (2)
  1. AVODART [Suspect]
     Indication: URINARY TRACT DISORDER
     Dosage: .5MG PER DAY
     Route: 048
  2. NO CONCURRENT MEDICATION [Concomitant]

REACTIONS (3)
  - DRUG INEFFECTIVE [None]
  - POLLAKIURIA [None]
  - PRODUCT QUALITY ISSUE [None]
